FAERS Safety Report 16625498 (Version 1)
Quarter: 2019Q3

REPORT INFORMATION
  Report Type: Spontaneous
  Country: FR (occurrence: FR)
  Receive Date: 20190724
  Receipt Date: 20190724
  Transmission Date: 20191004
  Serious: Yes (Hospitalization)
  Sender: FDA-Public Use
  Company Number: PHHY2019FR168328

PATIENT
  Age: 51 Year
  Sex: Male
  Weight: 82.5 kg

DRUGS (2)
  1. MYFORTIC [Suspect]
     Active Substance: MYCOPHENOLATE SODIUM
     Indication: STEM CELL TRANSPLANT
     Dosage: 1440 MG, QD
     Route: 048
     Dates: start: 20190429, end: 20190527
  2. NEORAL [Suspect]
     Active Substance: CYCLOSPORINE
     Indication: STEM CELL TRANSPLANT
     Dosage: 200 MG, QD
     Route: 048
     Dates: start: 20190429, end: 20190527

REACTIONS (5)
  - Tenosynovitis [Recovered/Resolved]
  - Arthralgia [Recovered/Resolved]
  - Bone pain [Recovered/Resolved]
  - Bone pain [Recovered/Resolved]
  - Arthralgia [Recovered/Resolved]

NARRATIVE: CASE EVENT DATE: 20190527
